FAERS Safety Report 18637533 (Version 2)
Quarter: 2021Q1

REPORT INFORMATION
  Report Type: Spontaneous
  Country: FR (occurrence: FR)
  Receive Date: 20201218
  Receipt Date: 20210316
  Transmission Date: 20210419
  Serious: Yes (Death, Hospitalization, Other)
  Sender: FDA-Public Use
  Company Number: FR-MYLANLABS-2020M1102653

PATIENT
  Sex: Female

DRUGS (14)
  1. GENTAMYCIN                         /00047101/ [Suspect]
     Active Substance: GENTAMICIN
     Indication: ANTIBIOTIC PROPHYLAXIS
     Dosage: UNK
     Route: 065
  2. CEFOTAXIME [Concomitant]
     Active Substance: CEFOTAXIME SODIUM
     Indication: ABDOMINAL SEPSIS
     Dosage: STARTED ON DAY 4 OF HOSPITALISATION
     Route: 065
  3. PARACETAMOL [Suspect]
     Active Substance: ACETAMINOPHEN
     Indication: FEELING HOT
  4. CODEINE PHOSPHATE HYDRATE [Suspect]
     Active Substance: CODEINE PHOSPHATE
     Indication: FEELING HOT
     Dosage: UNK
     Route: 065
  5. CODEINE PHOSPHATE HYDRATE [Suspect]
     Active Substance: CODEINE PHOSPHATE
     Indication: ABDOMINAL PAIN
  6. GENTAMYCIN                         /00047101/ [Suspect]
     Active Substance: GENTAMICIN
     Indication: SEPTIC SHOCK
  7. PARACETAMOL [Suspect]
     Active Substance: ACETAMINOPHEN
     Indication: BACK PAIN
     Dosage: UNK
     Route: 065
  8. PARACETAMOL [Suspect]
     Active Substance: ACETAMINOPHEN
     Indication: ABDOMINAL PAIN
  9. CLINDAMYCIN. [Suspect]
     Active Substance: CLINDAMYCIN
     Indication: BETA HAEMOLYTIC STREPTOCOCCAL INFECTION
     Dosage: TREATMENT EXTENDED TO DAY 9 OF HOSPITALISATION
     Route: 065
  10. CEFOTAXIME [Concomitant]
     Active Substance: CEFOTAXIME SODIUM
     Indication: EVIDENCE BASED TREATMENT
  11. CODEINE PHOSPHATE HYDRATE [Suspect]
     Active Substance: CODEINE PHOSPHATE
     Indication: BACK PAIN
  12. NOREPINEPHRINE. [Suspect]
     Active Substance: NOREPINEPHRINE
     Indication: SEPTIC SHOCK
     Dosage: UNK
     Route: 065
  13. METRONIDAZOLE. [Concomitant]
     Active Substance: METRONIDAZOLE
     Indication: ABDOMINAL SEPSIS
     Dosage: STARTED ON DAY 4 OF HOSPITALISATION
     Route: 065
  14. METRONIDAZOLE. [Concomitant]
     Active Substance: METRONIDAZOLE
     Indication: EVIDENCE BASED TREATMENT

REACTIONS (14)
  - Drug ineffective [Fatal]
  - Renal failure [Unknown]
  - Hyperleukocytosis [Unknown]
  - Disseminated intravascular coagulation [Unknown]
  - Necrosis [Unknown]
  - Neutropenia [Unknown]
  - Septic shock [Fatal]
  - Condition aggravated [Fatal]
  - Toxic shock syndrome streptococcal [Fatal]
  - Multiple organ dysfunction syndrome [Fatal]
  - Abdominal sepsis [Unknown]
  - Respiratory failure [Unknown]
  - Pain [Unknown]
  - Drug resistance [Unknown]
